FAERS Safety Report 16416919 (Version 2)
Quarter: 2019Q4

REPORT INFORMATION
  Report Type: Spontaneous
  Country: DE (occurrence: DE)
  Receive Date: 20190611
  Receipt Date: 20191028
  Transmission Date: 20200122
  Serious: Yes (Hospitalization, Other)
  Sender: FDA-Public Use
  Company Number: DE-ASTRAZENECA-2019SE84228

PATIENT
  Age: 24889 Day
  Sex: Female
  Weight: 103 kg

DRUGS (9)
  1. NEBIVOLOL. [Concomitant]
     Active Substance: NEBIVOLOL
     Dosage: 5 MG WHEN NECESSARY
  2. PREDNISOLON [Concomitant]
     Active Substance: PREDNISOLONE
     Dosage: 20 MG 1-0-1 AND WHEN NECESSARY
  3. FASENRA [Suspect]
     Active Substance: BENRALIZUMAB
     Indication: ASTHMA
     Route: 058
     Dates: start: 201810
  4. ALVESCO [Concomitant]
     Active Substance: CICLESONIDE
     Dosage: 1-0-1 INHALATIONS
     Dates: start: 20190603
  5. DYMISTA [Concomitant]
     Active Substance: AZELASTINE HYDROCHLORIDE\FLUTICASONE PROPIONATE
     Dosage: 1-0-1
  6. XARELTO [Concomitant]
     Active Substance: RIVAROXABAN
     Indication: ANTICOAGULANT THERAPY
     Dosage: 20 MG 1-0-0
     Dates: start: 20190603
  7. CERTIRIZIN [Concomitant]
     Dosage: 10 MG 1X1
  8. SPIRIVA [Concomitant]
     Active Substance: TIOTROPIUM BROMIDE MONOHYDRATE
     Dosage: 2.5 ?G 2-0-0
     Dates: start: 20190603
  9. ATROVENT [Concomitant]
     Active Substance: IPRATROPIUM BROMIDE
     Dosage: 10 ML WHEN NECESSARY

REACTIONS (7)
  - Pruritus [Unknown]
  - Blood cholesterol increased [Unknown]
  - Vertigo [Unknown]
  - Cardiovascular disorder [Recovered/Resolved]
  - Restlessness [Unknown]
  - Fall [Unknown]
  - Anaphylactic reaction [Unknown]

NARRATIVE: CASE EVENT DATE: 20190528
